FAERS Safety Report 4463756-8 (Version None)
Quarter: 2004Q4

REPORT INFORMATION
  Report Type: 
  Country: None (occurrence: None)
  Receive Date: 20041001
  Receipt Date: 20040921
  Transmission Date: 20050328
  Serious: Yes (Other)
  Sender: FDA-Public Use
  Company Number: US-BRISTOL-MYERS SQUIBB COMPANY-12708376

PATIENT
  Age: 64 Year
  Sex: Female

DRUGS (1)
  1. CAPTOPRIL [Suspect]
     Route: 048

REACTIONS (1)
  - GUILLAIN-BARRE SYNDROME [None]
